FAERS Safety Report 9147882 (Version 1)
Quarter: 2013Q1

REPORT INFORMATION
  Report Type: Report from Study
  Country: DE (occurrence: DE)
  Receive Date: 20130307
  Receipt Date: 20130307
  Transmission Date: 20140127
  Serious: Yes (Hospitalization)
  Sender: FDA-Public Use
  Company Number: PHHY2006DE010178

PATIENT
  Age: 58 Year
  Sex: Female

DRUGS (1)
  1. OXCARBAZEPINE [Suspect]
     Indication: EPILEPSY
     Dosage: 1800 MG, DAILY
     Dates: start: 20050103

REACTIONS (2)
  - Pathological fracture [Recovered/Resolved]
  - Convulsion [Recovered/Resolved]
